FAERS Safety Report 10407159 (Version 3)
Quarter: 2015Q1

REPORT INFORMATION
  Report Type: Spontaneous
  Country: US (occurrence: US)
  Receive Date: 20140825
  Receipt Date: 20150316
  Transmission Date: 20150720
  Serious: Yes (Hospitalization, Other)
  Sender: FDA-Public Use
  Company Number: US-GLAXOSMITHKLINE-A1086362A

PATIENT
  Age: 45 Year
  Sex: Male

DRUGS (2)
  1. COREG CR [Suspect]
     Active Substance: CARVEDILOL PHOSPHATE
     Indication: HYPERTENSION
     Dosage: 10 MG, QD
     Route: 065
     Dates: start: 201408, end: 201411
  2. COREG [Suspect]
     Active Substance: CARVEDILOL
     Indication: HYPERTENSION
     Dosage: 6.25 MG, UNK

REACTIONS (7)
  - Ill-defined disorder [Unknown]
  - Disability [Unknown]
  - Coronary arterial stent insertion [Unknown]
  - Drug ineffective [Recovering/Resolving]
  - Chest pain [Unknown]
  - Palpitations [Unknown]
  - Myocardial infarction [Unknown]

NARRATIVE: CASE EVENT DATE: 2010
